FAERS Safety Report 10883841 (Version 2)
Quarter: 2015Q1

REPORT INFORMATION
  Report Type: Spontaneous
  Country: US (occurrence: JP)
  Receive Date: 20150304
  Receipt Date: 20150312
  Transmission Date: 20150721
  Serious: Yes (Other)
  Sender: FDA-Public Use
  Company Number: US-AMGEN-JPNSP2015019928

PATIENT
  Age: 29 Year
  Sex: Male

DRUGS (9)
  1. CYCLOPHOSPHAMIDE. [Suspect]
     Active Substance: CYCLOPHOSPHAMIDE
     Indication: CHONDROSARCOMA
     Dosage: UNK
     Route: 065
  2. IFOMIDE [Suspect]
     Active Substance: IFOSFAMIDE
     Indication: BONE NEOPLASM
     Dosage: 10 MG/M2, UNK
     Route: 065
     Dates: start: 20150107, end: 20150111
  3. NEUTROGIN [Suspect]
     Active Substance: LENOGRASTIM
     Indication: PRODUCT USED FOR UNKNOWN INDICATION
     Dosage: 100 MCG, UNK
     Dates: start: 20150118
  4. IFOMIDE [Suspect]
     Active Substance: IFOSFAMIDE
     Indication: CHONDROSARCOMA
  5. ADRIACIN [Suspect]
     Active Substance: DOXORUBICIN HYDROCHLORIDE
     Indication: PRODUCT USED FOR UNKNOWN INDICATION
     Dosage: UNK
     Route: 042
  6. ETOPOSIDE. [Suspect]
     Active Substance: ETOPOSIDE
     Indication: CHONDROSARCOMA
  7. VINCRISTINE SULFATE. [Suspect]
     Active Substance: VINCRISTINE SULFATE
     Indication: CHONDROSARCOMA
     Dosage: UNK
     Route: 042
  8. ETOPOSIDE. [Suspect]
     Active Substance: ETOPOSIDE
     Indication: BONE NEOPLASM
     Dosage: 500 MG/M2, UNK
     Route: 065
     Dates: start: 20150107, end: 20150111
  9. PEGFILGRASTIM [Suspect]
     Active Substance: PEGFILGRASTIM
     Indication: COLONY STIMULATING FACTOR PROPHYLAXIS
     Dosage: 3.6 MG, UNK
     Route: 058
     Dates: start: 20150113, end: 20150113

REACTIONS (2)
  - Pneumonitis [Recovered/Resolved]
  - Pyrexia [Recovering/Resolving]

NARRATIVE: CASE EVENT DATE: 20150117
